FAERS Safety Report 4498707-3 (Version None)
Quarter: 2004Q4

REPORT INFORMATION
  Report Type: 
  Country: None (occurrence: None)
  Receive Date: 20041110
  Receipt Date: 20041110
  Transmission Date: 20050328
  Serious: No
  Sender: FDA-Public Use
  Company Number: None

PATIENT
  Sex: Male
  Weight: 68.4932 kg

DRUGS (1)
  1. ADVATE 963 IV /VIAL BAXTER [Suspect]
     Indication: FACTOR VIII DEFICIENCY
     Dosage: 1926 IU IV THREE TIMES PER WEEK
     Route: 042
     Dates: start: 20040809, end: 20041102

REACTIONS (6)
  - BACK PAIN [None]
  - BODY TEMPERATURE INCREASED [None]
  - CHILLS [None]
  - HEADACHE [None]
  - INFUSION RELATED REACTION [None]
  - TREMOR [None]
